FAERS Safety Report 4633064-0 (Version None)
Quarter: 2005Q2

REPORT INFORMATION
  Report Type: 
  Country: None (occurrence: None)
  Receive Date: 20050325
  Receipt Date: 20050119
  Transmission Date: 20051028
  Serious: No
  Sender: FDA-Public Use
  Company Number: USA030845057

PATIENT
  Age: 68 Year
  Sex: Female

DRUGS (1)
  1. FORTEO [Suspect]
     Indication: OSTEOPOROSIS
     Dates: start: 20030301

REACTIONS (9)
  - ANKLE FRACTURE [None]
  - ASTHENIA [None]
  - BACK DISORDER [None]
  - BALANCE DISORDER [None]
  - FALL [None]
  - FRACTURE [None]
  - HAND FRACTURE [None]
  - INJECTION SITE HAEMORRHAGE [None]
  - MUSCULAR WEAKNESS [None]
